FAERS Safety Report 5856115-4 (Version None)
Quarter: 2008Q3

REPORT INFORMATION
  Report Type: 
  Country: None (occurrence: None)
  Receive Date: 20080821
  Receipt Date: 20080821
  Transmission Date: 20090109
  Serious: Yes (Hospitalization)
  Sender: FDA-Public Use
  Company Number: None

PATIENT
  Age: 46 Year
  Sex: Male

DRUGS (1)
  1. VARENICLINE [Suspect]
     Dosage: 1 MG BID PO
     Route: 048
     Dates: start: 20080724, end: 20080728

REACTIONS (4)
  - PAIN [None]
  - POST-TRAUMATIC STRESS DISORDER [None]
  - STRESS [None]
  - SUICIDAL IDEATION [None]
